FAERS Safety Report 16259767 (Version 1)
Quarter: 2019Q2

REPORT INFORMATION
  Report Type: Spontaneous
  Country: US (occurrence: US)
  Receive Date: 20190327
  Receipt Date: 20190327
  Transmission Date: 20190711
  Serious: Yes (Other)
  Sender: FDA-Public Use
  Company Number: None

PATIENT
  Age: 75 Year
  Sex: Female
  Weight: 62.6 kg

DRUGS (1)
  1. LEVOFLOXACIN 500MG TAB ZYD= LEVAQUIN 500 MG TAB [Suspect]
     Active Substance: LEVOFLOXACIN
     Indication: SINUSITIS
     Dates: start: 20190222, end: 20190303

REACTIONS (8)
  - Back pain [None]
  - Pain in extremity [None]
  - Myalgia [None]
  - Arthralgia [None]
  - Restlessness [None]
  - Musculoskeletal stiffness [None]
  - Nervousness [None]
  - Headache [None]
